FAERS Safety Report 5892927-9 (Version None)
Quarter: 2008Q3

REPORT INFORMATION
  Report Type: 
  Country: None (occurrence: None)
  Receive Date: 20080919
  Receipt Date: 20060627
  Transmission Date: 20090109
  Serious: Yes (Other)
  Sender: FDA-Public Use
  Company Number: 2006-00541FE

PATIENT
  Age: 9 Year
  Sex: Male

DRUGS (1)
  1. MINIRIN [Suspect]
     Indication: ENURESIS
     Dosage: 0.4 MG PO
     Route: 048
     Dates: end: 20060522

REACTIONS (1)
  - HYPERTENSION [None]
